FAERS Safety Report 4704445-1 (Version None)
Quarter: 2005Q2

REPORT INFORMATION
  Report Type: 
  Country: None (occurrence: None)
  Receive Date: 20050630
  Receipt Date: 20050630
  Transmission Date: 20051028
  Serious: Yes (Death)
  Sender: FDA-Public Use
  Company Number: None

PATIENT
  Sex: Male
  Weight: 122.5 kg

DRUGS (1)
  1. INTERFERON ALPHA [Suspect]
     Dosage: 9.0MU SC 3X/WEEK CYCLE=4WEEKS
     Route: 058
     Dates: start: 20050127

REACTIONS (3)
  - BACK PAIN [None]
  - DIALYSIS [None]
  - PAIN [None]
